FAERS Safety Report 10969174 (Version 5)
Quarter: 2015Q3

REPORT INFORMATION
  Report Type: Report from Study
  Country: JP (occurrence: JP)
  Receive Date: 20150331
  Receipt Date: 20150830
  Transmission Date: 20151125
  Serious: Yes (Hospitalization)
  Sender: FDA-Public Use
  Company Number: JP-AMGEN-JPNNI2015029965

PATIENT
  Age: 67 Year
  Sex: Male
  Weight: 56 kg

DRUGS (16)
  1. PANITUMUMAB [Suspect]
     Active Substance: PANITUMUMAB
     Indication: COLON CANCER
     Dosage: 6 MG/KG, Q2WEEKS
     Route: 041
     Dates: start: 20150413, end: 20150622
  2. 5-FU                               /00098801/ [Suspect]
     Active Substance: FLUOROURACIL
     Dosage: 200 MG/M2, Q2WEEKS
     Route: 040
     Dates: start: 20150713
  3. CALCIUM LEVOFOLINATE [Concomitant]
     Active Substance: LEVOLEUCOVORIN CALCIUM
     Indication: COLON CANCER
     Dosage: 200 MG/M2, Q2WEEKS
     Route: 041
     Dates: start: 20150217, end: 20150302
  4. CALCIUM LEVOFOLINATE [Concomitant]
     Active Substance: LEVOLEUCOVORIN CALCIUM
     Indication: RECTAL CANCER
     Dosage: 200 MG/M2, Q2WEEKS
     Route: 041
     Dates: start: 20150413, end: 20150622
  5. CALCIUM LEVOFOLINATE [Concomitant]
     Active Substance: LEVOLEUCOVORIN CALCIUM
     Dosage: 200 MG/M2, Q2WEEKS
     Route: 041
     Dates: start: 20150713
  6. OXALIPLATIN. [Suspect]
     Active Substance: OXALIPLATIN
     Indication: RECTAL CANCER
     Dosage: 65 MG/M2, Q2WEEKS
     Route: 041
     Dates: start: 20150413, end: 20150622
  7. 5-FU                               /00098801/ [Suspect]
     Active Substance: FLUOROURACIL
     Dosage: 2000 MG/M2, Q2WEEKS
     Route: 041
     Dates: start: 20150413, end: 20150622
  8. PLAVIX [Concomitant]
     Active Substance: CLOPIDOGREL BISULFATE
     Indication: ACUTE MYOCARDIAL INFARCTION
     Dosage: UNK
     Route: 048
     Dates: start: 2009, end: 20150326
  9. OXALIPLATIN. [Suspect]
     Active Substance: OXALIPLATIN
     Indication: COLON CANCER
     Dosage: 85 MG/M2, Q2WEEKS
     Route: 041
     Dates: start: 20150217, end: 20150302
  10. OXALIPLATIN. [Suspect]
     Active Substance: OXALIPLATIN
     Dosage: 65 MG/M2, Q2WEEKS
     Route: 041
     Dates: start: 20150713
  11. 5-FU                               /00098801/ [Suspect]
     Active Substance: FLUOROURACIL
     Indication: COLON CANCER
     Dosage: 400 MG/M2, Q2WEEKS
     Route: 040
     Dates: start: 20150217, end: 20150302
  12. 5-FU                               /00098801/ [Suspect]
     Active Substance: FLUOROURACIL
     Dosage: 200 MG/M2, Q2WK
     Route: 040
     Dates: start: 20150413, end: 20150622
  13. 5-FU                               /00098801/ [Suspect]
     Active Substance: FLUOROURACIL
     Dosage: 2000 MG/M2, Q2WEEKS
     Route: 041
     Dates: start: 20150713
  14. PANITUMUMAB [Suspect]
     Active Substance: PANITUMUMAB
     Dosage: 6 MG/KG, Q2WEEKS
     Route: 041
     Dates: start: 20150713
  15. 5-FU                               /00098801/ [Suspect]
     Active Substance: FLUOROURACIL
     Indication: RECTAL CANCER
     Dosage: 2400 MG/M2, Q2WEEKS
     Route: 041
     Dates: start: 20150217, end: 20150302
  16. BUFFERIN                           /00009201/ [Concomitant]
     Indication: ACUTE MYOCARDIAL INFARCTION
     Dosage: UNK
     Route: 048
     Dates: start: 2009, end: 20150326

REACTIONS (2)
  - Stomatitis [Not Recovered/Not Resolved]
  - Febrile neutropenia [Recovered/Resolved]

NARRATIVE: CASE EVENT DATE: 20150316
